FAERS Safety Report 19712837 (Version 1)
Quarter: 2021Q3

REPORT INFORMATION
  Report Type: Spontaneous
  Country: ES (occurrence: ES)
  Receive Date: 20210817
  Receipt Date: 20210817
  Transmission Date: 20211014
  Serious: Yes (Hospitalization)
  Sender: FDA-Public Use
  Company Number: ES-JAZZ-2021-ES-006341

PATIENT
  Age: 41 Year
  Sex: Male

DRUGS (5)
  1. ZEPZELCA [Suspect]
     Active Substance: LURBINECTEDIN
     Dosage: 2.8 MILLIGRAM/SQ. METER
     Dates: start: 20200928, end: 20201110
  2. METFORMIN [Concomitant]
     Active Substance: METFORMIN HYDROCHLORIDE
     Indication: TYPE 2 DIABETES MELLITUS
     Dosage: UNK
  3. ZEPZELCA [Suspect]
     Active Substance: LURBINECTEDIN
     Indication: PANCREATIC NEUROENDOCRINE TUMOUR
     Dosage: UNK
     Dates: start: 202006
  4. KREON [Concomitant]
     Active Substance: PANCRELIPASE
     Indication: PANCREATIC FAILURE
     Dosage: UNK
  5. ZEPZELCA [Suspect]
     Active Substance: LURBINECTEDIN
     Dosage: 2.5 MILLIGRAM/SQ. METER
     Route: 042
     Dates: start: 20210118, end: 20210315

REACTIONS (3)
  - Abdominal pain upper [Unknown]
  - Anaemia [Unknown]
  - Asthenia [Unknown]

NARRATIVE: CASE EVENT DATE: 202008
